FAERS Safety Report 24326650 (Version 1)
Quarter: 2024Q3

REPORT INFORMATION
  Report Type: Spontaneous
  Country: US (occurrence: US)
  Receive Date: 20240917
  Receipt Date: 20240917
  Transmission Date: 20241017
  Serious: Yes (Hospitalization)
  Sender: ASTELLAS
  Company Number: US-ROCHE-10000070629

PATIENT
  Age: 41 Year
  Sex: Female
  Weight: 78.912 kg

DRUGS (14)
  1. TARCEVA [Suspect]
     Active Substance: ERLOTINIB HYDROCHLORIDE
     Indication: Anxiety
     Route: 065
  2. TARCEVA [Suspect]
     Active Substance: ERLOTINIB HYDROCHLORIDE
     Indication: Depression
  3. TARCEVA [Suspect]
     Active Substance: ERLOTINIB HYDROCHLORIDE
     Indication: Gastrooesophageal reflux disease
  4. TARCEVA [Suspect]
     Active Substance: ERLOTINIB HYDROCHLORIDE
     Indication: Hypertension
  5. TARCEVA [Suspect]
     Active Substance: ERLOTINIB HYDROCHLORIDE
     Indication: Squamous cell carcinoma
  6. SORAFENIB [Suspect]
     Active Substance: SORAFENIB
     Indication: Anxiety
     Route: 065
  7. SORAFENIB [Suspect]
     Active Substance: SORAFENIB
     Indication: Depression
  8. SORAFENIB [Suspect]
     Active Substance: SORAFENIB
     Indication: Gastrooesophageal reflux disease
  9. SORAFENIB [Suspect]
     Active Substance: SORAFENIB
     Indication: Hypertension
  10. SORAFENIB [Suspect]
     Active Substance: SORAFENIB
     Indication: Squamous cell carcinoma
  11. COREG [Concomitant]
     Active Substance: CARVEDILOL
     Indication: Product used for unknown indication
     Route: 065
  12. NEXIUM [Concomitant]
     Active Substance: ESOMEPRAZOLE MAGNESIUM
     Indication: Product used for unknown indication
     Route: 065
  13. LORAZEPAM [Concomitant]
     Active Substance: LORAZEPAM
     Indication: Product used for unknown indication
     Route: 065
  14. CELEXA [Concomitant]
     Active Substance: CITALOPRAM HYDROBROMIDE
     Indication: Product used for unknown indication
     Route: 065

REACTIONS (2)
  - Tachycardia [Unknown]
  - Dehydration [Unknown]

NARRATIVE: CASE EVENT DATE: 20110729
